FAERS Safety Report 6192841-8 (Version None)
Quarter: 2009Q2

REPORT INFORMATION
  Report Type: 
  Country: None (occurrence: None)
  Receive Date: 20090518
  Receipt Date: 20090508
  Transmission Date: 20091009
  Serious: Yes (Hospitalization)
  Sender: FDA-Public Use
  Company Number: US-AVENTIS-200912077US

PATIENT
  Sex: Male
  Weight: 79.5 kg

DRUGS (2)
  1. LANTUS [Suspect]
     Indication: DIABETES MELLITUS
     Dosage: DOSE: 40 UNITS AT 7 PM
     Route: 058
  2. OPTICLIK (INSULIN INJECTION PEN) [Suspect]
     Indication: DIABETES MELLITUS

REACTIONS (4)
  - DIARRHOEA [None]
  - NAUSEA [None]
  - VIRAL INFECTION [None]
  - VOMITING [None]
